FAERS Safety Report 6664033-7 (Version None)
Quarter: 2010Q2

REPORT INFORMATION
  Report Type: 
  Country: None (occurrence: None)
  Receive Date: 20100401
  Receipt Date: 20100324
  Transmission Date: 20101027
  Serious: Yes (Life-Threatening, Hospitalization)
  Sender: FDA-Public Use
  Company Number: A0833983A

PATIENT
  Age: 72 Year
  Sex: Female

DRUGS (3)
  1. PROMACTA [Suspect]
     Indication: IDIOPATHIC THROMBOCYTOPENIC PURPURA
     Dosage: 50MG PER DAY
     Route: 048
     Dates: start: 20090511, end: 20091102
  2. PREDNISONE TAB [Concomitant]
     Indication: IDIOPATHIC THROMBOCYTOPENIC PURPURA
     Dates: start: 20060701
  3. IMMUNE GLOBULIN INTRAVENOUS (HUMAN) [Concomitant]
     Indication: IDIOPATHIC THROMBOCYTOPENIC PURPURA
     Dates: end: 20090701

REACTIONS (5)
  - DEEP VEIN THROMBOSIS [None]
  - DRUG INEFFECTIVE [None]
  - HAEMORRHAGE [None]
  - PULMONARY EMBOLISM [None]
  - THROMBOSIS [None]
